FAERS Safety Report 21261940 (Version 2)
Quarter: 2022Q3

REPORT INFORMATION
  Report Type: Spontaneous
  Country: JP (occurrence: JP)
  Receive Date: 20220827
  Receipt Date: 20220829
  Transmission Date: 20221027
  Serious: Yes (Death)
  Sender: FDA-Public Use
  Company Number: JP-SAKK-2022SA346081AA

PATIENT
  Age: 70 Year

DRUGS (3)
  1. SARCLISA [Suspect]
     Active Substance: ISATUXIMAB-IRFC
     Indication: Plasma cell myeloma
     Dosage: DAILY DOSE: 600, DOSE FREQUENCY: AS DESCRIBED IN PACKAGE INSERT
     Route: 041
     Dates: start: 202202, end: 202207
  2. POMALYST [Concomitant]
     Active Substance: POMALIDOMIDE
     Indication: Plasma cell myeloma
     Dosage: DAILY DOSE: 3 MG, DOSE FREQUENCY: AS DESCRIBED IN PACKAGE INSERT
     Route: 065
     Dates: start: 202202, end: 202207
  3. DEXAMETHASONE [Concomitant]
     Active Substance: DEXAMETHASONE
     Indication: Plasma cell myeloma
     Dosage: DOSAGE AMOUNT/DOSE FREQUENCY: AS DESCRIBED IN PACKAGE INSERT
     Route: 065
     Dates: start: 202202, end: 202207

REACTIONS (1)
  - Disease progression [Fatal]

NARRATIVE: CASE EVENT DATE: 20220701
